FAERS Safety Report 4798882-7 (Version None)
Quarter: 2005Q4

REPORT INFORMATION
  Report Type: 
  Country: None (occurrence: None)
  Receive Date: 20051014
  Receipt Date: 20051005
  Transmission Date: 20060501
  Serious: Yes (Other)
  Sender: FDA-Public Use
  Company Number: PHNU2005DE03359

PATIENT
  Age: 30 Year
  Sex: Male

DRUGS (9)
  1. MYFORTIC [Suspect]
     Indication: BONE MARROW TRANSPLANT
     Dosage: 720 MG, BID
     Route: 048
     Dates: start: 20050901
  2. NEUPOGEN [Concomitant]
  3. PANTOZOL [Concomitant]
  4. SANDIMMUNE [Concomitant]
  5. AVELOX [Concomitant]
  6. MAGNESIUM [Concomitant]
  7. ACYCLOVIR [Concomitant]
  8. ENTOCORT [Concomitant]
  9. AARANE [Concomitant]

REACTIONS (1)
  - VISUAL ACUITY REDUCED [None]
